FAERS Safety Report 7640089-X (Version None)
Quarter: 2011Q3

REPORT INFORMATION
  Report Type: 
  Country: None (occurrence: None)
  Receive Date: 20110727
  Receipt Date: 20110714
  Transmission Date: 20111222
  Serious: Yes (Hospitalization, Other)
  Sender: FDA-Public Use
  Company Number: US-ELI_LILLY_AND_COMPANY-US201001004818

PATIENT
  Sex: Female

DRUGS (27)
  1. FOLIC ACID [Concomitant]
  2. FISH OIL [Concomitant]
  3. VITAMIN B-12 [Concomitant]
  4. FORTEO [Suspect]
     Dosage: 20 UG, DAILY (1/D)
     Route: 065
  5. OXAPROZIN [Concomitant]
  6. XANAX [Concomitant]
  7. ASPIRIN [Concomitant]
  8. COLACE [Concomitant]
  9. PREDNISONE [Concomitant]
  10. HYDROCHLORZIDE [Concomitant]
  11. ADVAIR DISKUS 100/50 [Concomitant]
  12. AMBIEN CR [Concomitant]
  13. RELAFEN [Concomitant]
  14. VITAMIN D [Concomitant]
  15. FERROUS SULFATE TAB [Concomitant]
  16. SIMVASTATIN [Concomitant]
  17. FORTEO [Suspect]
     Indication: OSTEOPOROSIS
     Dosage: 20 UG, DAILY (1/D)
     Route: 065
     Dates: start: 20091101
  18. MIRALAX [Concomitant]
  19. FLONASE [Concomitant]
  20. GABAPENTIN [Concomitant]
  21. FIBER-LAX [Concomitant]
  22. OXYBUTYNIN [Concomitant]
  23. VITAMIN E [Concomitant]
  24. FORTEO [Suspect]
     Dosage: 20 UG, QD
     Route: 065
  25. CENTRUM [Concomitant]
  26. CALCIUM ACETATE [Concomitant]
  27. COMBIVENT [Concomitant]

REACTIONS (4)
  - FEMUR FRACTURE [None]
  - FALL [None]
  - SPINAL COMPRESSION FRACTURE [None]
  - BALANCE DISORDER [None]
